FAERS Safety Report 12706460 (Version 5)
Quarter: 2016Q4

REPORT INFORMATION
  Report Type: Spontaneous
  Country: US (occurrence: US)
  Receive Date: 20160901
  Receipt Date: 20161129
  Transmission Date: 20170207
  Serious: No
  Sender: FDA-Public Use
  Company Number: US-PFIZER INC-2016403911

PATIENT
  Age: 52 Year
  Sex: Female
  Weight: 59 kg

DRUGS (2)
  1. PREMARIN [Suspect]
     Active Substance: ESTROGENS, CONJUGATED
     Indication: ATROPHIC VULVOVAGINITIS
     Dosage: 0.5 G, TWICE OR THRICE A WEEK
     Route: 067
     Dates: start: 2014
  2. PREMARIN [Suspect]
     Active Substance: ESTROGENS, CONJUGATED
     Dosage: 0.5 G, CYCLIC(DAILY FOR 3 WEEKS, THEN TWICE A WEEK FOR 6 MONTHS)
     Route: 067
     Dates: start: 20161031

REACTIONS (5)
  - Pain [Unknown]
  - Product packaging quantity issue [Unknown]
  - Incorrect dose administered [Unknown]
  - Product use issue [Unknown]
  - Inflammation [Unknown]

NARRATIVE: CASE EVENT DATE: 201605
